FAERS Safety Report 9334026 (Version 1)
Quarter: 2013Q2

REPORT INFORMATION
  Report Type: Spontaneous
  Country: ES (occurrence: None)
  Receive Date: 20130604
  Receipt Date: 20130604
  Transmission Date: 20140414
  Serious: Yes (Hospitalization)
  Sender: FDA-Public Use
  Company Number: AUR-APL-2013-04499

PATIENT
  Age: 69 Year
  Sex: Male

DRUGS (3)
  1. LEVOFLOXACIN (LEVOFLOXACIN) [Suspect]
     Indication: LUNG INFECTION
     Route: 048
     Dates: start: 20120211, end: 20120217
  2. VFEND (VORICONAZOLE) INFUSION [Suspect]
     Indication: BRONCHOPULMONARY ASPERGILLOSIS
     Route: 048
     Dates: start: 20120207, end: 20120217
  3. ZYVOXID (LINEZOLID) [Concomitant]

REACTIONS (4)
  - Tachycardia [None]
  - Hypotension [None]
  - Dyskinesia [None]
  - Myoclonus [None]
